FAERS Safety Report 8321005-4 (Version None)
Quarter: 2012Q2

REPORT INFORMATION
  Report Type: 
  Country: None (occurrence: None)
  Receive Date: 20120430
  Receipt Date: 20120425
  Transmission Date: 20120825
  Serious: Yes (Other)
  Sender: FDA-Public Use
  Company Number: PHEH2012US008784

PATIENT
  Sex: Female

DRUGS (3)
  1. CHOLESTEROL [Concomitant]
  2. ZOMETA [Suspect]
     Dosage: UNK UKN, UNK
     Dates: start: 20120101
  3. FEMARA [Concomitant]

REACTIONS (1)
  - TOOTHACHE [None]
